FAERS Safety Report 17064341 (Version 1)
Quarter: 2019Q4

REPORT INFORMATION
  Report Type: Spontaneous
  Country: US (occurrence: US)
  Receive Date: 20191122
  Receipt Date: 20191122
  Transmission Date: 20200122
  Serious: Yes (Other)
  Sender: FDA-Public Use
  Company Number: US-PFIZER INC-2019500727

PATIENT
  Age: 50 Year
  Sex: Female

DRUGS (1)
  1. IBRANCE [Suspect]
     Active Substance: PALBOCICLIB
     Dosage: UNK
     Dates: start: 2018

REACTIONS (11)
  - Oropharyngeal pain [Unknown]
  - Dyspnoea [Unknown]
  - Bronchitis [Unknown]
  - Malaise [Unknown]
  - Oral pain [Unknown]
  - Infection [Unknown]
  - Pneumonia [Unknown]
  - Dizziness [Unknown]
  - Dry mouth [Unknown]
  - White blood cell count decreased [Unknown]
  - Sinusitis [Unknown]
